FAERS Safety Report 25349891 (Version 1)
Quarter: 2025Q2

REPORT INFORMATION
  Report Type: Spontaneous
  Country: JP (occurrence: JP)
  Receive Date: 20250523
  Receipt Date: 20250523
  Transmission Date: 20250716
  Serious: Yes (Death, Life-Threatening, Hospitalization)
  Sender: ACCORD
  Company Number: JP-Accord-485696

PATIENT
  Age: 75 Year
  Sex: Male
  Weight: 49.6 kg

DRUGS (17)
  1. FLUOROURACIL [Suspect]
     Active Substance: FLUOROURACIL
     Indication: Colon cancer stage IV
     Dosage: BOLUS?40 CYCLICAL
     Dates: start: 202204, end: 202311
  2. OXALIPLATIN [Suspect]
     Active Substance: OXALIPLATIN
     Indication: Colon cancer stage IV
     Dosage: 40 CYCLICAL
     Dates: start: 202204, end: 202311
  3. BEVACIZUMAB [Suspect]
     Active Substance: BEVACIZUMAB
     Indication: Colon cancer stage IV
     Dosage: 40 CYCLICAL
     Dates: start: 202204, end: 202311
  4. DEXAMETHASONE [Suspect]
     Active Substance: DEXAMETHASONE
     Indication: Colon cancer stage IV
     Dosage: THE TOTAL DOSE OF DEX ADMINISTERED WAS 264 MG, EQUIVALENT TO 1,760 MG OF PREDNISOLONE (PSL).
     Dates: start: 202204, end: 202311
  5. LEUCOVORIN [Suspect]
     Active Substance: LEUCOVORIN\LEUCOVORIN CALCIUM
     Indication: Colon cancer stage IV
     Dosage: 40 CYCLICAL
     Dates: start: 202204, end: 202311
  6. AMLODIPINE [Concomitant]
     Active Substance: AMLODIPINE BESYLATE
  7. ASPIRIN [Concomitant]
     Active Substance: ASPIRIN
  8. BISOPROLOL FUMARATE [Concomitant]
     Active Substance: BISOPROLOL FUMARATE
  9. DULOXETINE [Concomitant]
     Active Substance: DULOXETINE
  10. EZETIMIBE [Concomitant]
     Active Substance: EZETIMIBE
  11. FEBUXOSTAT [Concomitant]
     Active Substance: FEBUXOSTAT
  12. LANSOPRAZOLE [Concomitant]
     Active Substance: LANSOPRAZOLE
  13. MAGNESIUM OXIDE [Concomitant]
     Active Substance: MAGNESIUM OXIDE
  14. NICORANDIL [Concomitant]
     Active Substance: NICORANDIL
  15. ROSUVASTATIN [Concomitant]
     Active Substance: ROSUVASTATIN
  16. TELMISARTAN [Concomitant]
     Active Substance: TELMISARTAN
  17. FLUOROURACIL [Suspect]
     Active Substance: FLUOROURACIL
     Indication: Colon cancer stage IV
     Dosage: BOLUS?40 CYCLICAL
     Dates: start: 202204, end: 202311

REACTIONS (3)
  - Febrile neutropenia [Fatal]
  - Pneumocystis jirovecii pneumonia [Fatal]
  - Acute respiratory distress syndrome [Fatal]

NARRATIVE: CASE EVENT DATE: 20231101
